FAERS Safety Report 15708236 (Version 3)
Quarter: 2019Q1

REPORT INFORMATION
  Report Type: Spontaneous
  Country: US (occurrence: US)
  Receive Date: 20181211
  Receipt Date: 20190111
  Transmission Date: 20190417
  Serious: No
  Sender: FDA-Public Use
  Company Number: US-PFIZER INC-2018501867

PATIENT
  Age: 49 Year
  Sex: Female
  Weight: 74.84 kg

DRUGS (2)
  1. EUCRISA [Suspect]
     Active Substance: CRISABOROLE
     Indication: ECZEMA
     Dosage: UNK UNK, 2X/DAY (TWICE A DAY IN MORNING AND AT NIGHT AFTER WASHING FACE)
     Route: 061
     Dates: start: 201809
  2. EUCRISA [Suspect]
     Active Substance: CRISABOROLE
     Dosage: UNK

REACTIONS (1)
  - Application site pain [Not Recovered/Not Resolved]
